FAERS Safety Report 20916562 (Version 3)
Quarter: 2022Q4

REPORT INFORMATION
  Report Type: Other
  Country: DE (occurrence: None)
  Receive Date: 20220605
  Receipt Date: 20221212
  Transmission Date: 20230113
  Serious: No
  Sender: FDA-Public Use
  Company Number: DE-ROCHE-2723175

PATIENT
  Age: 28 Year
  Sex: Male

DRUGS (8)
  1. OCREVUS [Suspect]
     Active Substance: OCRELIZUMAB
     Indication: Relapsing-remitting multiple sclerosis
     Route: 042
     Dates: start: 20201102
  2. OCREVUS [Suspect]
     Active Substance: OCRELIZUMAB
     Route: 042
     Dates: start: 20210519
  3. TAVOR (LORAZEPAM) [Suspect]
     Active Substance: LORAZEPAM
     Indication: Product used for unknown indication
     Route: 065
  4. VIGANTOL [Concomitant]
  5. VIGANTOL [Concomitant]
  6. FISH OIL [Concomitant]
     Active Substance: FISH OIL
  7. LAVENDER OIL [Concomitant]
     Active Substance: LAVENDER OIL
  8. PFIZER-BIONTECH COVID-19 VACCINE [Concomitant]
     Active Substance: TOZINAMERAN
     Indication: COVID-19 prophylaxis
     Dosage: SECOND COVID-19 VACCINATION
     Dates: start: 20210506

REACTIONS (15)
  - Muscle tightness [Recovered/Resolved]
  - Pain [Not Recovered/Not Resolved]
  - Kyphosis [Not Recovered/Not Resolved]
  - Panic attack [Recovered/Resolved]
  - Fatigue [Recovered/Resolved]
  - Chills [Recovered/Resolved]
  - Nasopharyngitis [Recovered/Resolved]
  - Insomnia [Recovered/Resolved]
  - Feeling cold [Recovering/Resolving]
  - COVID-19 [Recovered/Resolved]
  - Mass [Recovered/Resolved]
  - Sensory disturbance [Not Recovered/Not Resolved]
  - Influenza like illness [Recovered/Resolved]
  - Nasopharyngitis [Recovered/Resolved]
  - Oropharyngeal pain [Recovered/Resolved]

NARRATIVE: CASE EVENT DATE: 20201102
